FAERS Safety Report 19302619 (Version 21)
Quarter: 2023Q2

REPORT INFORMATION
  Report Type: Report from Study
  Country: US (occurrence: US)
  Receive Date: 20210525
  Receipt Date: 20230623
  Transmission Date: 20230722
  Serious: Yes (Hospitalization, Other)
  Sender: FDA-Public Use
  Company Number: NVSC2021US111887

PATIENT
  Age: 49 Year
  Sex: Female
  Weight: 90.71 kg

DRUGS (28)
  1. TREPROSTINIL [Suspect]
     Active Substance: TREPROSTINIL
     Indication: Pulmonary arterial hypertension
     Dosage: 18 NG/KG/MIN, CONT
     Route: 042
     Dates: start: 20210513
  2. TREPROSTINIL [Suspect]
     Active Substance: TREPROSTINIL
     Dosage: 38 NG/KG/MIN, CONT
     Route: 042
  3. TREPROSTINIL [Suspect]
     Active Substance: TREPROSTINIL
     Dosage: 30 NG/KG/MIN, CONT
     Route: 042
  4. TREPROSTINIL [Suspect]
     Active Substance: TREPROSTINIL
     Dosage: 30 NG/KG/MIN, CONT
     Route: 042
  5. TREPROSTINIL [Suspect]
     Active Substance: TREPROSTINIL
     Dosage: 22 NG/KG/MIN, CONT
     Route: 042
  6. TREPROSTINIL [Suspect]
     Active Substance: TREPROSTINIL
     Dosage: 31 NG/KG/MIN, CONT
     Route: 042
  7. TREPROSTINIL [Suspect]
     Active Substance: TREPROSTINIL
     Dosage: 40 NG/KG/MIN, CONT
     Route: 042
  8. TREPROSTINIL [Suspect]
     Active Substance: TREPROSTINIL
     Dosage: 48 NG/KG/ MIN, CONT
     Route: 042
  9. TREPROSTINIL [Suspect]
     Active Substance: TREPROSTINIL
     Dosage: 58 NG/KG/ MIN, CONT
     Route: 042
  10. TREPROSTINIL [Suspect]
     Active Substance: TREPROSTINIL
     Dosage: 58 NG/KG/ MIN, CONT
     Route: 042
  11. TREPROSTINIL [Suspect]
     Active Substance: TREPROSTINIL
     Dosage: 60 NG/KG/MIN, CONT
     Route: 042
  12. TREPROSTINIL [Suspect]
     Active Substance: TREPROSTINIL
     Dosage: (65 NG/KG/ MIN) CONT
     Route: 042
  13. EPOPROSTENOL [Concomitant]
     Active Substance: EPOPROSTENOL
     Indication: Product used for unknown indication
     Dosage: UNK
     Route: 065
  14. UPTRAVI [Concomitant]
     Active Substance: SELEXIPAG
     Indication: Product used for unknown indication
     Dosage: UNK
     Route: 065
  15. OPSUMIT [Concomitant]
     Active Substance: MACITENTAN
     Indication: Product used for unknown indication
     Dosage: UNK
     Route: 065
  16. SILDENAFIL [Concomitant]
     Active Substance: SILDENAFIL
     Indication: Product used for unknown indication
     Dosage: UNK
     Route: 065
  17. BUMETANIDE [Concomitant]
     Active Substance: BUMETANIDE
     Indication: Product used for unknown indication
     Dosage: UNK
     Route: 065
  18. SPIRONOLACTONE [Concomitant]
     Active Substance: SPIRONOLACTONE
     Indication: Product used for unknown indication
     Dosage: UNK
     Route: 065
  19. QUETIAPINE [Concomitant]
     Active Substance: QUETIAPINE
     Indication: Product used for unknown indication
     Dosage: UNK
     Route: 065
  20. ESCITALOPRAM [Concomitant]
     Active Substance: ESCITALOPRAM OXALATE
     Indication: Product used for unknown indication
     Dosage: UNK
     Route: 065
  21. POTASSIUM CHLORIDE [Concomitant]
     Active Substance: POTASSIUM CHLORIDE
     Indication: Product used for unknown indication
     Dosage: UNK
     Route: 065
  22. SIMVASTATIN [Concomitant]
     Active Substance: SIMVASTATIN
     Indication: Product used for unknown indication
     Dosage: UNK
     Route: 065
  23. PANTOPRAZOLE [Concomitant]
     Active Substance: PANTOPRAZOLE
     Indication: Product used for unknown indication
     Dosage: UNK
     Route: 065
  24. ARIPIPRAZOLE [Concomitant]
     Active Substance: ARIPIPRAZOLE
     Indication: Product used for unknown indication
     Dosage: UNK
     Route: 065
  25. MONTELUKAST [Concomitant]
     Active Substance: MONTELUKAST SODIUM
     Indication: Product used for unknown indication
     Dosage: UNK
     Route: 065
  26. GABAPENTIN [Concomitant]
     Active Substance: GABAPENTIN
     Indication: Product used for unknown indication
     Dosage: UNK
     Route: 065
  27. CYCLOBENZAPRINE [Concomitant]
     Active Substance: CYCLOBENZAPRINE
     Indication: Product used for unknown indication
     Dosage: UNK
     Route: 065
  28. ONDANSETRON [Concomitant]
     Active Substance: ONDANSETRON
     Indication: Product used for unknown indication
     Dosage: UNK
     Route: 065

REACTIONS (19)
  - Catheter site haemorrhage [Recovered/Resolved]
  - Pyrexia [Recovered/Resolved]
  - Fluid retention [Unknown]
  - Dyspnoea [Recovered/Resolved]
  - Device issue [Recovered/Resolved]
  - Device dislocation [Recovered/Resolved]
  - Vascular device infection [Unknown]
  - Swelling face [Unknown]
  - Tooth abscess [Recovered/Resolved]
  - Skin infection [Unknown]
  - Sleep apnoea syndrome [Unknown]
  - Catheter site erythema [Unknown]
  - Weight increased [Unknown]
  - Headache [Unknown]
  - Rash [Unknown]
  - Erythema [Unknown]
  - Abdominal discomfort [Unknown]
  - Nausea [Not Recovered/Not Resolved]
  - Vomiting [Not Recovered/Not Resolved]

NARRATIVE: CASE EVENT DATE: 20211205
